FAERS Safety Report 16842713 (Version 1)
Quarter: 2019Q3

REPORT INFORMATION
  Report Type: Spontaneous
  Country: US (occurrence: US)
  Receive Date: 20190801
  Receipt Date: 20190801
  Transmission Date: 20191005
  Serious: Yes (Hospitalization)
  Sender: FDA-Public Use
  Company Number: None

PATIENT
  Age: 70 Year
  Sex: Female

DRUGS (1)
  1. ACTEMRA [Suspect]
     Active Substance: TOCILIZUMAB
     Indication: RHEUMATOID ARTHRITIS
     Route: 058
     Dates: start: 20180129

REACTIONS (5)
  - Abscess [None]
  - Hepatic enzyme increased [None]
  - Abdominal pain [None]
  - Gastrointestinal perforation [None]
  - Constipation [None]

NARRATIVE: CASE EVENT DATE: 20190715
